FAERS Safety Report 24285410 (Version 1)
Quarter: 2024Q3

REPORT INFORMATION
  Report Type: Report from Study
  Country: US (occurrence: US)
  Receive Date: 20240905
  Receipt Date: 20240905
  Transmission Date: 20241016
  Serious: Yes (Other)
  Sender: SANOFI AVENTIS
  Company Number: US-SA-2024SA256707

PATIENT
  Age: 53 Year
  Sex: Female

DRUGS (16)
  1. BELUMOSUDIL MESYLATE [Suspect]
     Active Substance: BELUMOSUDIL MESYLATE
     Indication: Graft versus host disease
     Dosage: 200 MG, QD WITH DINNER
     Route: 048
     Dates: start: 20231219
  2. LEVOTHYROXINE [Concomitant]
     Active Substance: LEVOTHYROXINE\LEVOTHYROXINE SODIUM
     Dosage: UNK
  3. VALTREX [Concomitant]
     Active Substance: VALACYCLOVIR HYDROCHLORIDE
     Dosage: UNK
  4. CHOLECALCIFEROL [Concomitant]
     Active Substance: CHOLECALCIFEROL
     Dosage: UNK, QW
  5. ELIQUIS [Concomitant]
     Active Substance: APIXABAN
     Dosage: 5 MG, BID
  6. TACROLIMUS [Concomitant]
     Active Substance: TACROLIMUS
     Dosage: 0.5 MG, BID
  7. SERTRALINE [Concomitant]
     Active Substance: SERTRALINE HYDROCHLORIDE
     Dosage: 50 MG, QD
  8. FLUOROMETHOLONE [Concomitant]
     Active Substance: FLUOROMETHOLONE
     Dosage: UNK
     Route: 047
  9. BUDESONIDE [Concomitant]
     Active Substance: BUDESONIDE
     Dosage: 3 MG, BID
  10. CIDOFOVIR [Concomitant]
     Active Substance: CIDOFOVIR
     Dosage: UNK
  11. ATORVASTATIN [Concomitant]
     Active Substance: ATORVASTATIN
     Dosage: UNK
  12. DAPSONE [Concomitant]
     Active Substance: DAPSONE
     Dosage: UNK UNK, QD
  13. PREDNISOLONE [Concomitant]
     Active Substance: PREDNISOLONE
     Dosage: UNK, DISCONTINUED
     Route: 047
  14. TACROLIMUS [Concomitant]
     Active Substance: TACROLIMUS
     Indication: Graft versus host disease
     Dosage: UNK, DISCONTINUED
  15. CLOBETASOL [Concomitant]
     Active Substance: CLOBETASOL
     Indication: Graft versus host disease in skin
     Dosage: UNK, DISCONTINUED
  16. DEXAMETHASONE [Concomitant]
     Active Substance: DEXAMETHASONE
     Dosage: UNK
     Route: 048

REACTIONS (12)
  - Cataract [Unknown]
  - Glossitis [Not Recovered/Not Resolved]
  - Dry mouth [Not Recovered/Not Resolved]
  - Oropharyngeal pain [Recovered/Resolved]
  - Glossodynia [Unknown]
  - Blood urine present [Recovering/Resolving]
  - Gingival bleeding [Recovered/Resolved]
  - Salivary gland resection [Unknown]
  - Fatigue [Recovering/Resolving]
  - Decreased appetite [Recovered/Resolved]
  - BK virus infection [Recovered/Resolved]
  - Cough [Recovered/Resolved]
